FAERS Safety Report 11086691 (Version 2)
Quarter: 2015Q3

REPORT INFORMATION
  Report Type: Spontaneous
  Country: US (occurrence: US)
  Receive Date: 20150504
  Receipt Date: 20150818
  Transmission Date: 20151125
  Serious: Yes (Hospitalization, Other)
  Sender: FDA-Public Use
  Company Number: US-BAYER-2015-183450

PATIENT
  Age: 22 Year
  Sex: Female

DRUGS (1)
  1. MIRENA [Suspect]
     Active Substance: LEVONORGESTREL
     Indication: CONTRACEPTION
     Dosage: 20 MCG/24HR, CONT
     Route: 015
     Dates: start: 20100106, end: 20130916

REACTIONS (15)
  - Migraine [None]
  - Menorrhagia [None]
  - Genital haemorrhage [None]
  - Injury [None]
  - Anxiety [None]
  - Fear [None]
  - Impaired work ability [None]
  - Pain [None]
  - Discomfort [None]
  - Device issue [None]
  - Abdominal pain [None]
  - Abdominal pain lower [None]
  - Device dislocation [None]
  - Ovarian cyst [None]
  - Depression [None]

NARRATIVE: CASE EVENT DATE: 20130826
